FAERS Safety Report 7107106-7 (Version None)
Quarter: 2010Q4

REPORT INFORMATION
  Report Type: 
  Country: None (occurrence: None)
  Receive Date: 20101116
  Receipt Date: 20101006
  Transmission Date: 20110411
  Serious: No
  Sender: FDA-Public Use
  Company Number: US-ABBOTT-10P-163-0676205-00

PATIENT
  Sex: Female
  Weight: 57.658 kg

DRUGS (8)
  1. SIMCOR [Suspect]
     Indication: PRODUCT USED FOR UNKNOWN INDICATION
     Dosage: 500/20 AT HS
     Dates: start: 20100915, end: 20101006
  2. SIMCOR [Suspect]
     Dosage: 1000/20 MG AT BEDTIME
     Dates: start: 20101006
  3. TRAMADOL HCL [Suspect]
     Indication: PAIN IN EXTREMITY
     Dosage: PRN
  4. CALCIUM [Concomitant]
     Indication: PRODUCT USED FOR UNKNOWN INDICATION
  5. MULTI-VITAMIN [Concomitant]
     Indication: PRODUCT USED FOR UNKNOWN INDICATION
  6. FISH OIL [Concomitant]
     Indication: PRODUCT USED FOR UNKNOWN INDICATION
  7. ADVIL [Concomitant]
     Indication: PRODUCT USED FOR UNKNOWN INDICATION
     Dosage: PRN
  8. LISINOPRIL [Concomitant]
     Indication: PRODUCT USED FOR UNKNOWN INDICATION
     Dosage: PRN

REACTIONS (7)
  - BURNING SENSATION [None]
  - ERYTHEMA [None]
  - HYPERHIDROSIS [None]
  - NAUSEA [None]
  - PAIN IN EXTREMITY [None]
  - PRURITUS [None]
  - VOMITING [None]
